FAERS Safety Report 12614148 (Version 2)
Quarter: 2016Q3

REPORT INFORMATION
  Report Type: Spontaneous
  Country: JP (occurrence: JP)
  Receive Date: 20160802
  Receipt Date: 20160810
  Transmission Date: 20161109
  Serious: Yes (Death)
  Sender: FDA-Public Use
  Company Number: JP-JNJFOC-20160726756

PATIENT
  Age: 60 Year
  Sex: Male

DRUGS (3)
  1. MS CONTIN [Concomitant]
     Active Substance: MORPHINE SULFATE
     Indication: CANCER PAIN
     Route: 048
     Dates: start: 20160718
  2. DUROTEP MT [Suspect]
     Active Substance: FENTANYL
     Indication: CANCER PAIN
     Route: 062
     Dates: start: 20160718, end: 20160718
  3. MS CONTIN [Concomitant]
     Active Substance: MORPHINE SULFATE
     Indication: CANCER PAIN
     Route: 048
     Dates: start: 201603, end: 20160717

REACTIONS (1)
  - Lung neoplasm malignant [Fatal]
